FAERS Safety Report 5929804-0 (Version None)
Quarter: 2008Q4

REPORT INFORMATION
  Report Type: 
  Country: None (occurrence: None)
  Receive Date: 20081024
  Receipt Date: 20081014
  Transmission Date: 20090506
  Serious: Yes (Other)
  Sender: FDA-Public Use
  Company Number: SE-PFIZER INC-2007089407

PATIENT
  Sex: Female

DRUGS (3)
  1. LYRICA [Suspect]
     Indication: BACK PAIN
     Route: 048
     Dates: start: 20060221, end: 20060904
  2. ALVEDON [Concomitant]
     Dates: end: 20060912
  3. DEXTROPROPOXIFEN [Concomitant]
     Dates: end: 20060912

REACTIONS (3)
  - CARPAL TUNNEL SYNDROME [None]
  - GENERALISED OEDEMA [None]
  - WEIGHT INCREASED [None]
